FAERS Safety Report 12862932 (Version 3)
Quarter: 2016Q4

REPORT INFORMATION
  Report Type: Spontaneous
  Country: US (occurrence: US)
  Receive Date: 20161019
  Receipt Date: 20161215
  Transmission Date: 20170207
  Serious: Yes (Other)
  Sender: FDA-Public Use
  Company Number: US-ALLERGAN-1672722US

PATIENT
  Age: 70 Year
  Sex: Female
  Weight: 47.62 kg

DRUGS (2)
  1. RESTASIS [Suspect]
     Active Substance: CYCLOSPORINE
     Dosage: 2 GTT, UNK
     Route: 047
     Dates: start: 2016
  2. RESTASIS [Suspect]
     Active Substance: CYCLOSPORINE
     Indication: DRY EYE
     Dosage: 2 GTT, BID
     Route: 047
     Dates: start: 2015, end: 201609

REACTIONS (1)
  - Retinal detachment [Unknown]
